FAERS Safety Report 24385665 (Version 1)
Quarter: 2024Q4

REPORT INFORMATION
  Report Type: Spontaneous
  Country: GB (occurrence: GB)
  Receive Date: 20241001
  Receipt Date: 20241001
  Transmission Date: 20250114
  Serious: Yes (Other)
  Sender: TEVA
  Company Number: None

PATIENT
  Age: 65 Year
  Sex: Female
  Weight: 81 kg

DRUGS (3)
  1. LEVOFLOXACIN [Suspect]
     Active Substance: LEVOFLOXACIN
     Indication: Infection
     Route: 065
     Dates: end: 20240107
  2. PREDNISOLONE [Concomitant]
     Active Substance: PREDNISOLONE
     Indication: Adverse drug reaction
  3. LETROZOLE [Concomitant]
     Active Substance: LETROZOLE
     Indication: Breast cancer

REACTIONS (3)
  - Neuropathy peripheral [Not Recovered/Not Resolved]
  - Medication error [Unknown]
  - Tendonitis [Not Recovered/Not Resolved]

NARRATIVE: CASE EVENT DATE: 20240101
